FAERS Safety Report 6140826-X (Version None)
Quarter: 2009Q2

REPORT INFORMATION
  Report Type: 
  Country: None (occurrence: None)
  Receive Date: 20090402
  Receipt Date: 20090325
  Transmission Date: 20091009
  Serious: Yes (Other)
  Sender: FDA-Public Use
  Company Number: US-ASTRAZENECA-2009UW07897

PATIENT

DRUGS (2)
  1. CRESTOR [Suspect]
     Route: 048
     Dates: start: 20070101, end: 20081001
  2. CRESTOR [Suspect]
     Route: 048
     Dates: start: 20081001

REACTIONS (3)
  - ARTHRALGIA [None]
  - FASCIITIS [None]
  - MUSCLE STRAIN [None]
